FAERS Safety Report 5247196-X (Version None)
Quarter: 2007Q1

REPORT INFORMATION
  Report Type: 
  Country: None (occurrence: None)
  Receive Date: 20070221
  Receipt Date: 20070206
  Transmission Date: 20070707
  Serious: Yes (Death)
  Sender: FDA-Public Use
  Company Number: 2007-154593-NL

PATIENT
  Age: 50 Year
  Sex: Male

DRUGS (1)
  1. DEXAMETHASONE [Suspect]
     Indication: BRAIN OEDEMA
     Dosage: 4 MG QID

REACTIONS (10)
  - ABDOMINAL PAIN UPPER [None]
  - ASCITES [None]
  - GENERAL PHYSICAL HEALTH DETERIORATION [None]
  - HEPATIC ENCEPHALOPATHY [None]
  - HEPATITIS B [None]
  - HEPATORENAL SYNDROME [None]
  - IMMUNOSUPPRESSION [None]
  - OEDEMA PERIPHERAL [None]
  - PITTING OEDEMA [None]
  - RESPIRATORY FAILURE [None]
